FAERS Safety Report 8200991-7 (Version None)
Quarter: 2012Q1

REPORT INFORMATION
  Report Type: 
  Country: None (occurrence: None)
  Receive Date: 20120308
  Receipt Date: 20120227
  Transmission Date: 20120608
  Serious: Yes (Hospitalization, Other)
  Sender: FDA-Public Use
  Company Number: 2012MA002638

PATIENT
  Age: 57 Year
  Sex: Male

DRUGS (6)
  1. AMANTADINE HCL (AMIDE) [Concomitant]
  2. AMITRIPTYLINE HCL [Concomitant]
  3. CARBIDOPA AND LEVODOPA [Suspect]
     Indication: PARKINSON'S DISEASE
     Dosage: QD;PO
     Route: 048
  4. BIPERIDEN HYDROCHLORIDE TAB [Concomitant]
  5. PRAMIPEXOLE DIHYDROCHLORIDE [Concomitant]
  6. CLONAZEPAM [Concomitant]

REACTIONS (17)
  - DYSKINESIA [None]
  - IMPAIRED DRIVING ABILITY [None]
  - DYSARTHRIA [None]
  - MUSCLE RIGIDITY [None]
  - DRUG EFFECT DECREASED [None]
  - AGGRESSION [None]
  - TREMOR [None]
  - PSYCHOMOTOR HYPERACTIVITY [None]
  - DYSPHONIA [None]
  - RESTLESSNESS [None]
  - HYPERHIDROSIS [None]
  - ANXIETY [None]
  - ABNORMAL BEHAVIOUR [None]
  - BRADYKINESIA [None]
  - DRUG DEPENDENCE [None]
  - HYPERSEXUALITY [None]
  - DEPRESSION [None]
